FAERS Safety Report 5929246-8 (Version None)
Quarter: 2008Q4

REPORT INFORMATION
  Report Type: 
  Country: None (occurrence: None)
  Receive Date: 20081023
  Receipt Date: 20081023
  Transmission Date: 20090506
  Serious: Yes (Other)
  Sender: FDA-Public Use
  Company Number: None

PATIENT
  Age: 25 Year
  Sex: Male

DRUGS (2)
  1. METOCLOPRAMIDE [Suspect]
     Indication: ANTIEMETIC SUPPORTIVE CARE
     Dosage: 10 MG Q4H PRN IV 20 MG Q4H PRN IV  4 DOSES AND 1 DOSE
     Route: 042
     Dates: start: 20080417, end: 20080417
  2. METOCLOPRAMIDE [Suspect]
     Indication: ANTIEMETIC SUPPORTIVE CARE
     Dosage: 10 MG Q4H PRN IV 20 MG Q4H PRN IV  4 DOSES AND 1 DOSE
     Route: 042
     Dates: start: 20080417, end: 20080417

REACTIONS (1)
  - METHAEMOGLOBINAEMIA [None]
